FAERS Safety Report 4651575-9 (Version None)
Quarter: 2005Q2

REPORT INFORMATION
  Report Type: 
  Country: None (occurrence: None)
  Receive Date: 20050502
  Receipt Date: 20050419
  Transmission Date: 20051028
  Serious: Yes (Other)
  Sender: FDA-Public Use
  Company Number: 2005049153

PATIENT
  Sex: Male
  Weight: 90.7194 kg

DRUGS (3)
  1. GLUCOTROL XL [Suspect]
     Indication: DIABETES MELLITUS NON-INSULIN-DEPENDENT
     Dosage: 10 MG (10 MG, 1 IN 1 D), ORAL
     Route: 048
     Dates: start: 19980101
  2. QUINAPRIL HCL [Concomitant]
  3. OMEPRAZOLE [Concomitant]

REACTIONS (3)
  - BLADDER CANCER [None]
  - KIDNEY SMALL [None]
  - NEPHROTIC SYNDROME [None]
